FAERS Safety Report 7998391-8 (Version None)
Quarter: 2011Q4

REPORT INFORMATION
  Report Type: 
  Country: None (occurrence: None)
  Receive Date: 20111221
  Receipt Date: 20110916
  Transmission Date: 20120403
  Serious: No
  Sender: FDA-Public Use
  Company Number: US-GLAXOSMITHKLINE-A0944971A

PATIENT
  Age: 76 Year
  Sex: Female

DRUGS (6)
  1. MULTI-VITAMIN [Concomitant]
  2. PREVACID [Concomitant]
  3. TOPROL-XL [Concomitant]
  4. LOVAZA [Suspect]
     Indication: BLOOD TRIGLYCERIDES INCREASED
     Dosage: 2CAP PER DAY
     Route: 048
     Dates: start: 20090901, end: 20110601
  5. SYNTHROID [Concomitant]
  6. ZOLOFT [Concomitant]

REACTIONS (4)
  - ABDOMINAL PAIN UPPER [None]
  - ERUCTATION [None]
  - NAUSEA [None]
  - FLATULENCE [None]
